FAERS Safety Report 7622288-6 (Version None)
Quarter: 2011Q3

REPORT INFORMATION
  Report Type: 
  Country: None (occurrence: None)
  Receive Date: 20110720
  Receipt Date: 20110526
  Transmission Date: 20111222
  Serious: Yes (Other)
  Sender: FDA-Public Use
  Company Number: US-BAYER-2011-045526

PATIENT
  Age: 22 Month
  Sex: Female
  Weight: 13.152 kg

DRUGS (1)
  1. MAGNEVIST [Suspect]
     Indication: NUCLEAR MAGNETIC RESONANCE IMAGING BRAIN
     Dosage: 2 ML, ONCE
     Route: 042
     Dates: start: 20110525, end: 20110525

REACTIONS (2)
  - URTICARIA [None]
  - RASH [None]
